FAERS Safety Report 9438086 (Version 1)
Quarter: 2013Q3

REPORT INFORMATION
  Report Type: Spontaneous
  Country: US (occurrence: US)
  Receive Date: 20130802
  Receipt Date: 20130802
  Transmission Date: 20140515
  Serious: No
  Sender: FDA-Public Use
  Company Number: US-BRISTOL-MYERS SQUIBB COMPANY-16824864

PATIENT
  Age: 82 Year
  Sex: Female

DRUGS (3)
  1. WARFARIN SODIUM [Suspect]
     Indication: ATRIAL FIBRILLATION
     Dosage: ADJUSTMENT IN NOV10,NOW 2.5 MG PO BID DAILY.
     Route: 048
     Dates: start: 201003
  2. ATENOLOL [Concomitant]
  3. COLCRYS [Concomitant]

REACTIONS (2)
  - Night sweats [Not Recovered/Not Resolved]
  - Burning sensation [Not Recovered/Not Resolved]
